FAERS Safety Report 4364291-8 (Version None)
Quarter: 2004Q2

REPORT INFORMATION
  Report Type: 
  Country: None (occurrence: None)
  Receive Date: 20040519
  Receipt Date: 20040510
  Transmission Date: 20050107
  Serious: Yes (Hospitalization)
  Sender: FDA-Public Use
  Company Number: 2004212750US

PATIENT
  Age: 62 Year
  Sex: Female

DRUGS (18)
  1. DELTASONE [Suspect]
     Indication: RHEUMATOID ARTHRITIS
     Dosage: 5 MG, QD, ORAL
     Route: 048
     Dates: start: 19900807
  2. ENBREL [Suspect]
     Indication: RHEUMATOID ARTHRITIS
     Dosage: 50 MG, WEEKLY, SUBCUTANEOUS
     Route: 058
     Dates: start: 20021113
  3. LEFLUNOMIDE [Suspect]
     Indication: RHEUMATOID ARTHRITIS
     Dosage: 20 MG, QD, ORAL
     Route: 048
     Dates: start: 19981204
  4. VICODIN [Concomitant]
  5. POTASSIUM CHLORIDE [Concomitant]
  6. NAPROXEN [Concomitant]
  7. TIZANIDINE HCL [Concomitant]
  8. METFORMIN HYDROCHLORIDE [Concomitant]
  9. ESOMEPRAZOLE MAGNESIUM [Concomitant]
  10. VICODIN FORTE (VITAMINS NOS) [Concomitant]
  11. NIZATIDINE [Concomitant]
  12. LEVOTHYROXINE SODIUM [Concomitant]
  13. DIAZEPAM [Concomitant]
  14. FUROSEMIDE [Concomitant]
  15. CALCIUM CARBONATE [Concomitant]
  16. ALBUTEROL SULFATE (SALBUTABMOL SULFATE) [Concomitant]
  17. FLUTICASONE PROPIONATE [Concomitant]
  18. SALMETEROL  XINAFOATE (SALMETEROL XINAFOATE) [Concomitant]

REACTIONS (3)
  - ATELECTASIS [None]
  - EMPHYSEMA [None]
  - GASTROENTERITIS [None]
